FAERS Safety Report 5844047-7 (Version None)
Quarter: 2008Q3

REPORT INFORMATION
  Report Type: 
  Country: None (occurrence: None)
  Receive Date: 20080813
  Receipt Date: 20080801
  Transmission Date: 20090109
  Serious: Yes (Hospitalization)
  Sender: FDA-Public Use
  Company Number: FR-ELI_LILLY_AND_COMPANY-FR200808000184

PATIENT
  Weight: 1.51 kg

DRUGS (7)
  1. ZYPREXA [Suspect]
     Dosage: 1 D/F, DAILY (1/D)
     Route: 064
     Dates: start: 20070718, end: 20080201
  2. EFFEXOR [Concomitant]
     Dosage: 150 MG, DAILY (1/D)
     Route: 064
     Dates: end: 20080314
  3. VALIUM [Concomitant]
     Dosage: 40 MG, UNK
     Route: 064
     Dates: end: 20080201
  4. ANAFRANIL [Concomitant]
     Dosage: 3 D/F, DAILY (1/D)
     Route: 064
     Dates: end: 20080201
  5. TERCIAN [Concomitant]
     Dosage: 30 D/F, DAILY (1/D)
     Route: 064
     Dates: end: 20080201
  6. NOCTAMIDE [Concomitant]
     Dosage: 1 D/F, DAILY (1/D)
     Route: 064
     Dates: end: 20080201
  7. EUPHYTOSE [Concomitant]
     Dates: end: 20080101

REACTIONS (10)
  - ANAEMIA [None]
  - CRYING [None]
  - DRUG WITHDRAWAL SYNDROME NEONATAL [None]
  - FEEDING DISORDER NEONATAL [None]
  - FOETAL GROWTH RETARDATION [None]
  - HYPERGLYCAEMIA [None]
  - PREMATURE BABY [None]
  - REGURGITATION [None]
  - SMALL FOR DATES BABY [None]
  - TREMOR [None]
